FAERS Safety Report 5243466-X (Version None)
Quarter: 2007Q1

REPORT INFORMATION
  Report Type: 
  Country: None (occurrence: None)
  Receive Date: 20070222
  Receipt Date: 20070206
  Transmission Date: 20070707
  Serious: Yes (Other)
  Sender: FDA-Public Use
  Company Number: PHEH2007US01727

PATIENT
  Age: 59 Year
  Sex: Male

DRUGS (18)
  1. ZOMETA [Suspect]
     Indication: MULTIPLE MYELOMA
     Dosage: 4 MG EVERY 30 DAYS
     Dates: end: 20061006
  2. VINCRISTINE + ADRIAMYCIN + DEXAMETHASONE [Concomitant]
  3. CYTOXAN [Concomitant]
  4. THALIDOMIDE [Concomitant]
  5. ETOPOSIDE [Concomitant]
  6. METOCLOPRAMIDE [Concomitant]
     Dosage: 10 MG, QD
     Route: 048
  7. ZOCOR [Concomitant]
  8. LEXAPRO [Concomitant]
     Dosage: 10 MG, QD
  9. ACCUPRIL [Concomitant]
     Dosage: 10 MG, QD
  10. TOPROL-XL [Concomitant]
     Dosage: 50 MG, QD
  11. NORVASC [Concomitant]
     Dosage: 5 MG, QD
  12. PROMETHAZINE [Concomitant]
     Indication: NAUSEA
     Dosage: 25 MG, TID, PRN
  13. OXYCODONE HCL [Concomitant]
     Indication: PAIN
     Dosage: UNK, PRN
  14. ASPIRIN [Concomitant]
     Dosage: 325 MG, QD
  15. LANTUS [Concomitant]
     Dosage: 40 U, QD
  16. HUMALOG [Concomitant]
     Dosage: UNK, PRN
  17. VELCADE [Concomitant]
     Indication: MULTIPLE MYELOMA
     Dates: start: 20070108
  18. DEXAMETHASONE [Concomitant]

REACTIONS (23)
  - ARTHRALGIA [None]
  - ARTHROSCOPY [None]
  - BLOOD CALCIUM INCREASED [None]
  - BLOOD CREATININE INCREASED [None]
  - BONE DISORDER [None]
  - DENTAL CARIES [None]
  - FACIAL PALSY [None]
  - FATIGUE [None]
  - GINGIVAL RECESSION [None]
  - HAEMATOCRIT DECREASED [None]
  - HAEMOGLOBIN DECREASED [None]
  - NEUROPATHY PERIPHERAL [None]
  - ORAL SOFT TISSUE DISORDER [None]
  - OSTEONECROSIS [None]
  - PAIN [None]
  - PERIODONTITIS [None]
  - PROTEIN TOTAL INCREASED [None]
  - RED BLOOD CELL COUNT ABNORMAL [None]
  - RED BLOOD CELL COUNT DECREASED [None]
  - RETINAL OPERATION [None]
  - TOOTH DISORDER [None]
  - TOOTH EXTRACTION [None]
  - TOOTH MALFORMATION [None]
